FAERS Safety Report 9842877 (Version 1)
Quarter: 2013Q4

REPORT INFORMATION
  Report Type: Spontaneous
  Country: US (occurrence: None)
  Receive Date: 20131223
  Receipt Date: 20131223
  Transmission Date: 20140711
  Serious: No
  Sender: FDA-Public Use
  Company Number: 220464LEO

PATIENT
  Age: 82 Year
  Sex: Male

DRUGS (1)
  1. PICATO (0.015%, GEL) [Suspect]
     Indication: ACTINIC KERATOSIS
     Dosage: STARTED 2 WEEKS AGO
     Route: 061

REACTIONS (3)
  - Eyelid oedema [None]
  - Vision blurred [None]
  - Accidental exposure to product [None]
